FAERS Safety Report 12794262 (Version 3)
Quarter: 2017Q2

REPORT INFORMATION
  Report Type: Spontaneous
  Country: US (occurrence: US)
  Receive Date: 20160929
  Receipt Date: 20170607
  Transmission Date: 20170830
  Serious: No
  Sender: FDA-Public Use
  Company Number: US-JNJFOC-20160905788

PATIENT
  Age: 45 Year
  Sex: Male

DRUGS (3)
  1. RISPERDAL [Suspect]
     Active Substance: RISPERIDONE
     Indication: ANTISOCIAL PERSONALITY DISORDER
     Route: 048
     Dates: start: 20090620
  2. RISPERIDONE. [Suspect]
     Active Substance: RISPERIDONE
     Indication: PRODUCT USED FOR UNKNOWN INDICATION
     Route: 048
  3. RISPERDAL [Suspect]
     Active Substance: RISPERIDONE
     Indication: ANTISOCIAL PERSONALITY DISORDER
     Route: 048
     Dates: start: 201112, end: 201202

REACTIONS (4)
  - Product use in unapproved indication [Unknown]
  - Abnormal weight gain [Unknown]
  - Gynaecomastia [Unknown]
  - Off label use [Unknown]

NARRATIVE: CASE EVENT DATE: 20090620
